FAERS Safety Report 7029460-7 (Version None)
Quarter: 2010Q4

REPORT INFORMATION
  Report Type: 
  Country: None (occurrence: None)
  Receive Date: 20101005
  Receipt Date: 20100927
  Transmission Date: 20110411
  Serious: Yes (Hospitalization, Other)
  Sender: FDA-Public Use
  Company Number: US-ABBOTT-10P-163-0673560-00

PATIENT
  Sex: Female
  Weight: 83.99 kg

DRUGS (10)
  1. HUMIRA [Suspect]
     Indication: RHEUMATOID ARTHRITIS
     Dates: start: 20090519
  2. ADVAIR DISKUS 100/50 [Concomitant]
     Indication: ASTHMA
     Dosage: 2-4 PUFFS A DAY AS NEEDED
  3. AEROSOL INHALER [Concomitant]
     Indication: ASTHMA
  4. PRILOSEC OTC [Concomitant]
     Indication: GASTROOESOPHAGEAL REFLUX DISEASE
  5. ASPIRIN [Concomitant]
     Indication: CARDIAC DISORDER
  6. TOPROL-XL [Concomitant]
     Indication: CARDIAC DISORDER
     Dates: start: 20100922
  7. MELOXICAM [Concomitant]
     Indication: ARTHRITIS
  8. ZOCOR [Concomitant]
     Indication: BLOOD CHOLESTEROL
     Dates: start: 20100922
  9. PLAVIX [Concomitant]
     Indication: STENT PLACEMENT
     Dates: start: 20100922
  10. PLAVIX [Concomitant]

REACTIONS (4)
  - ANGIOPLASTY [None]
  - CHEST PAIN [None]
  - CORONARY ARTERIAL STENT INSERTION [None]
  - FEELING HOT [None]
